FAERS Safety Report 4733478-4 (Version None)
Quarter: 2005Q3

REPORT INFORMATION
  Report Type: 
  Country: None (occurrence: None)
  Receive Date: 20050801
  Receipt Date: 20050718
  Transmission Date: 20060218
  Serious: Yes (Disabling, Other)
  Sender: FDA-Public Use
  Company Number: GBWYE787730JUN05

PATIENT
  Age: 19 Year
  Sex: Female

DRUGS (11)
  1. TAZOCIN                     (PIPERACILLIN/TAZOBACTAM, INJECTION) [Suspect]
     Indication: CYSTIC FIBROSIS
     Dosage: 4.5  G 3X PER 1 DAY, INTRAVENOUS
     Route: 042
     Dates: start: 20050516, end: 20050601
  2. TOBRAMYCIN [Concomitant]
  3. PREDNISONE [Concomitant]
  4. COLOMYCIN             (COLISTIN MESILATE SODIUM/SODIUM CHLORIDE) [Concomitant]
  5. FLUOCLOXACILLIN         (FLUCLOXACILLIN) [Concomitant]
  6. VITAMIN A AND D IN COMBINATION        (VITAMIN A AND D IN COMBINATION) [Concomitant]
  7. VITAMIN E [Concomitant]
  8. UROSDEOXYCHOLIC ACID               (UROSODEOXYCHOLIC ACID) [Concomitant]
  9. DORNASE ALFA         (DORNASE ALFA) [Concomitant]
  10. CREON [Concomitant]
  11. IBUPROFEN [Concomitant]

REACTIONS (5)
  - ARTHRALGIA [None]
  - ERYTHEMA [None]
  - JOINT STIFFNESS [None]
  - MYALGIA [None]
  - OEDEMA PERIPHERAL [None]
